FAERS Safety Report 24861346 (Version 4)
Quarter: 2025Q1

REPORT INFORMATION
  Report Type: Spontaneous
  Country: IT (occurrence: IT)
  Receive Date: 20250120
  Receipt Date: 20250326
  Transmission Date: 20250409
  Serious: Yes (Other)
  Sender: AUROBINDO
  Company Number: IT-BRISTOL-MYERS SQUIBB COMPANY-2024-182989

PATIENT
  Age: 69 Year
  Sex: Male

DRUGS (3)
  1. LENALIDOMIDE [Suspect]
     Active Substance: LENALIDOMIDE
     Indication: Plasma cell myeloma
     Route: 065
     Dates: start: 20220712
  2. DEXAMETHASONE [Suspect]
     Active Substance: DEXAMETHASONE
     Indication: Malignant melanoma
     Route: 065
  3. DARATUMUMAB [Suspect]
     Active Substance: DARATUMUMAB
     Indication: Malignant melanoma
     Route: 065

REACTIONS (12)
  - Aortic arteriosclerosis [Not Recovered/Not Resolved]
  - Mitral valve sclerosis [Not Recovered/Not Resolved]
  - Aortic dilatation [Not Recovered/Not Resolved]
  - Condition aggravated [Unknown]
  - Aortic aneurysm [Unknown]
  - Atrial fibrillation [Recovered/Resolved]
  - Systolic dysfunction [Not Recovered/Not Resolved]
  - Ventricular hypertrophy [Not Recovered/Not Resolved]
  - Gastritis [Recovered/Resolved]
  - Dry skin [Recovered/Resolved]
  - Asthenia [Recovered/Resolved]
  - Off label use [Unknown]

NARRATIVE: CASE EVENT DATE: 20230517
